FAERS Safety Report 6142632-9 (Version None)
Quarter: 2009Q2

REPORT INFORMATION
  Report Type: 
  Country: None (occurrence: None)
  Receive Date: 20090403
  Receipt Date: 20071121
  Transmission Date: 20091009
  Serious: Yes (Death, Hospitalization)
  Sender: FDA-Public Use
  Company Number: US-ASTRAZENECA-2006UW25319

PATIENT
  Age: 20668 Day
  Sex: Male
  Weight: 122.5 kg

DRUGS (17)
  1. SEROQUEL [Suspect]
     Indication: SCHIZOPHRENIA
     Route: 048
     Dates: start: 20040101, end: 20060829
  2. SEROQUEL [Suspect]
     Dosage: 200 - 400 MG
     Route: 048
     Dates: start: 20011203
  3. AMBIEN [Concomitant]
  4. ASPIRIN [Concomitant]
  5. COREG [Concomitant]
  6. COZAAR [Concomitant]
  7. DIGOXIN [Concomitant]
  8. FUROSEMIDE [Concomitant]
  9. GABAPENTIN [Concomitant]
  10. GLIPIZIDE [Concomitant]
  11. POTASSIUM CHLORIDE [Concomitant]
  12. THIOTHIXENE [Concomitant]
  13. ZETIA [Concomitant]
  14. PLAVIX [Concomitant]
  15. DOCUSATE [Concomitant]
  16. AUGMENTIN '125' [Concomitant]
  17. LORAZEPAM [Concomitant]

REACTIONS (8)
  - ARTERIOSCLEROSIS [None]
  - CARDIAC FAILURE CONGESTIVE [None]
  - CARDIOMYOPATHY [None]
  - CORONARY ARTERY DISEASE [None]
  - DIABETES MELLITUS [None]
  - LEFT VENTRICULAR DYSFUNCTION [None]
  - OBESITY [None]
  - PULMONARY HYPERTENSION [None]
